FAERS Safety Report 11780111 (Version 1)
Quarter: 2015Q4

REPORT INFORMATION
  Report Type: Spontaneous
  Country: US (occurrence: US)
  Receive Date: 20151126
  Receipt Date: 20151126
  Transmission Date: 20160304
  Serious: No
  Sender: FDA-Public Use
  Company Number: US-JNJFOC-20151016007

PATIENT

DRUGS (7)
  1. ALL OTHER THERAPEUTIC PRODUCTS [Concomitant]
     Active Substance: UNSPECIFIED INGREDIENT
     Indication: DYSPHONIA
     Route: 065
  2. EMERGEN C [Concomitant]
     Active Substance: MINERALS\VITAMINS
     Indication: DYSPHONIA
     Route: 065
  3. VITAMINE D [Concomitant]
     Indication: DYSPHONIA
     Route: 065
  4. TYLENOL [Suspect]
     Active Substance: ACETAMINOPHEN
     Route: 065
  5. SALT SOLUTIONS [Concomitant]
     Indication: DYSPHONIA
     Route: 065
  6. TYLENOL [Suspect]
     Active Substance: ACETAMINOPHEN
     Indication: DYSPHONIA
     Route: 065
  7. THERAFLU NF [Concomitant]
     Indication: DYSPHONIA
     Route: 065

REACTIONS (2)
  - Product use issue [Unknown]
  - Drug ineffective for unapproved indication [Unknown]
